FAERS Safety Report 9696125 (Version 1)
Quarter: 2013Q4

REPORT INFORMATION
  Report Type: Spontaneous
  Country: SG (occurrence: None)
  Receive Date: 20131115
  Receipt Date: 20131115
  Transmission Date: 20140711
  Serious: Yes (Other)
  Sender: FDA-Public Use
  Company Number: SYM-2013-12538

PATIENT
  Age: 22 Year
  Sex: Female

DRUGS (2)
  1. FLAGYL [Suspect]
     Indication: PRODUCT USED FOR UNKNOWN INDICATION
  2. PONSTAN (MEFENAMIC ACID) (MEFENAMIC ACID) [Concomitant]

REACTIONS (1)
  - Angioedema [None]
